FAERS Safety Report 4971733-3 (Version None)
Quarter: 2006Q2

REPORT INFORMATION
  Report Type: 
  Country: None (occurrence: None)
  Receive Date: 20060406
  Receipt Date: 20060315
  Transmission Date: 20061013
  Serious: Yes (Other)
  Sender: FDA-Public Use
  Company Number: US200603003804

PATIENT
  Sex: Female

DRUGS (1)
  1. HUMULIN L [Suspect]
     Dates: start: 19910101

REACTIONS (2)
  - ABASIA [None]
  - ARTHRITIS [None]
